FAERS Safety Report 16016069 (Version 1)
Quarter: 2019Q1

REPORT INFORMATION
  Report Type: Spontaneous
  Country: GB (occurrence: GB)
  Receive Date: 20190228
  Receipt Date: 20190228
  Transmission Date: 20190418
  Serious: Yes (Other)
  Sender: FDA-Public Use
  Company Number: GB-TEVA-2019-GB-1016030

PATIENT
  Age: 34 Year
  Sex: Female
  Weight: 88 kg

DRUGS (10)
  1. NAPROXEN. [Concomitant]
     Active Substance: NAPROXEN
     Dosage: 2 DOSAGE FORMS DAILY;
     Dates: start: 20180801
  2. GABAPENTIN. [Concomitant]
     Active Substance: GABAPENTIN
     Dosage: 3 DOSAGE FORMS DAILY;
     Dates: start: 20181116
  3. COSMOCOL [Concomitant]
     Dosage: TAKE ONE TO THREE SACHETS DAILY IN DIVIDED DOSES
     Dates: start: 20190109, end: 20190201
  4. DARIFENACIN. [Concomitant]
     Active Substance: DARIFENACIN
     Dosage: 1 DOSAGE FORMS DAILY;
     Dates: start: 20190109
  5. MORPHINE SULFATE. [Concomitant]
     Active Substance: MORPHINE SULFATE
     Dosage: 2.5 ML - 5ML
     Dates: start: 20180801
  6. CASSIA [Concomitant]
     Dosage: 2 DOSAGE FORMS DAILY; AT NIGHT
     Dates: start: 20190109, end: 20190119
  7. HYDROCORTISONE. [Concomitant]
     Active Substance: HYDROCORTISONE
     Dosage: 2 DOSAGE FORMS DAILY;
     Dates: start: 20181228, end: 20190104
  8. OXYBUTYNIN. [Suspect]
     Active Substance: OXYBUTYNIN CHLORIDE
     Dosage: 10 MILLIGRAM DAILY;
     Dates: start: 20181228
  9. OMEPRAZOLE. [Concomitant]
     Active Substance: OMEPRAZOLE
     Dosage: 1 DOSAGE FORMS DAILY;
     Dates: start: 20180801
  10. TRAMADOL. [Concomitant]
     Active Substance: TRAMADOL
     Dosage: TAKE 1 OR 2 EVERY FOUR TO SIX HOURS OR NO MORE
     Dates: start: 20180801

REACTIONS (1)
  - Haemoptysis [Recovered/Resolved]

NARRATIVE: CASE EVENT DATE: 20190201
